FAERS Safety Report 9369960 (Version 1)
Quarter: 2013Q2

REPORT INFORMATION
  Report Type: Report from Study
  Country: JP (occurrence: JP)
  Receive Date: 20130626
  Receipt Date: 20130626
  Transmission Date: 20140414
  Serious: Yes (Death)
  Sender: FDA-Public Use
  Company Number: JP-SANOFI-AVENTIS-2013SA064266

PATIENT
  Sex: 0

DRUGS (2)
  1. OXALIPLATIN [Suspect]
     Indication: GASTRIC CANCER
     Dosage: DAY 1
     Route: 042
  2. GIMERACIL/OTERACIL POTASSIUM/TEGAFUR [Suspect]
     Indication: GASTRIC CANCER
     Dosage: GIVEN FOR 14 DAYS.
     Route: 048

REACTIONS (1)
  - Death [Fatal]
